FAERS Safety Report 17593354 (Version 4)
Quarter: 2020Q2

REPORT INFORMATION
  Report Type: Spontaneous
  Country: DE (occurrence: DE)
  Receive Date: 20200327
  Receipt Date: 20200413
  Transmission Date: 20200713
  Serious: Yes (Hospitalization, Other)
  Sender: FDA-Public Use
  Company Number: DE-LUNDBECK-DKLU3014663

PATIENT
  Age: 8 Year
  Sex: Female

DRUGS (19)
  1. CLOBAZAM. [Interacting]
     Active Substance: CLOBAZAM
     Indication: SEIZURE
     Route: 065
  2. EVEROLIMUS. [Interacting]
     Active Substance: EVEROLIMUS
     Indication: PRODUCT USED FOR UNKNOWN INDICATION
     Route: 065
  3. LAMOTRIGINE. [Suspect]
     Active Substance: LAMOTRIGINE
     Indication: PARTIAL SEIZURES
     Route: 065
  4. CANNABIDIOL [Interacting]
     Active Substance: CANNABIDIOL
     Dosage: 9.3 MG/KG/DAY REDUCED TO 0.13 MG/KG/DAY
     Route: 065
  5. EVEROLIMUS. [Interacting]
     Active Substance: EVEROLIMUS
     Route: 065
  6. OXCARBAZEPINE. [Suspect]
     Active Substance: OXCARBAZEPINE
     Indication: PARTIAL SEIZURES
     Route: 065
  7. CANNABIDIOL [Interacting]
     Active Substance: CANNABIDIOL
     Indication: EPILEPSY
     Dosage: 20.4 MG/KG/DAY
     Route: 065
  8. ZONISAMIDE. [Suspect]
     Active Substance: ZONISAMIDE
     Indication: PARTIAL SEIZURES
     Route: 065
  9. EVEROLIMUS. [Interacting]
     Active Substance: EVEROLIMUS
     Route: 065
  10. CARBAMAZEPINE. [Suspect]
     Active Substance: CARBAMAZEPINE
     Indication: PARTIAL SEIZURES
     Route: 065
  11. LACOSAMIDE. [Suspect]
     Active Substance: LACOSAMIDE
     Indication: EPILEPSY
     Route: 065
  12. EVEROLIMUS. [Interacting]
     Active Substance: EVEROLIMUS
     Route: 065
     Dates: start: 20190928
  13. VIGABATRIN (TABLET) [Suspect]
     Active Substance: VIGABATRIN
     Indication: PARTIAL SEIZURES
     Route: 065
  14. VALPROATE SODIUM. [Suspect]
     Active Substance: VALPROATE SODIUM
     Indication: PARTIAL SEIZURES
     Route: 065
  15. TOPIRAMATE. [Suspect]
     Active Substance: TOPIRAMATE
     Indication: PARTIAL SEIZURES
     Route: 065
  16. SULTHIAME [Suspect]
     Active Substance: SULTHIAME
     Indication: PARTIAL SEIZURES
     Route: 065
  17. PROPRANOLOL [Concomitant]
     Active Substance: PROPRANOLOL HYDROCHLORIDE
     Indication: PRODUCT USED FOR UNKNOWN INDICATION
     Route: 065
  18. CANNABIDIOL [Interacting]
     Active Substance: CANNABIDIOL
     Route: 065
     Dates: start: 20180928, end: 201903
  19. EVEROLIMUS. [Interacting]
     Active Substance: EVEROLIMUS
     Route: 065

REACTIONS (9)
  - Drug interaction [Unknown]
  - Arrhythmia [Unknown]
  - Drug level increased [Recovered/Resolved]
  - Therapeutic product effective for unapproved indication [Unknown]
  - Tonic convulsion [Unknown]
  - Therapeutic product ineffective for unapproved indication [Unknown]
  - Epilepsy [Unknown]
  - Drug ineffective [Unknown]
  - Off label use [Unknown]
